FAERS Safety Report 16963619 (Version 3)
Quarter: 2019Q4

REPORT INFORMATION
  Report Type: Spontaneous
  Country: US (occurrence: US)
  Receive Date: 20191025
  Receipt Date: 20191121
  Transmission Date: 20200122
  Serious: Yes (Other)
  Sender: FDA-Public Use
  Company Number: US-009507513-1910USA013443

PATIENT
  Age: 39 Year
  Sex: Female
  Weight: 55.33 kg

DRUGS (11)
  1. PUREGON PEN [DEVICE] [Suspect]
     Active Substance: DEVICE
  2. FOLLISTIM AQ [Suspect]
     Active Substance: FOLLITROPIN
     Indication: INFERTILITY FEMALE
     Dosage: 300 IU/0.36 ML, AS DIRECTED
     Route: 058
     Dates: start: 20191017
  3. MENOPUR [Concomitant]
     Active Substance: FOLLITROPIN\LUTEINIZING HORMONE
     Indication: INFERTILITY MALE
     Dosage: 150 INTERNATIONAL UNIT, QD
     Route: 058
     Dates: start: 20191020, end: 20191031
  4. LUPRON [Concomitant]
     Active Substance: LEUPROLIDE ACETATE
     Indication: INFERTILITY MALE
     Dosage: 80 UNITS, QD
     Route: 058
     Dates: start: 20191031
  5. GANIRELIX ACETATE. [Concomitant]
     Active Substance: GANIRELIX ACETATE
     Indication: INFERTILITY MALE
     Dosage: 250 MILLIGRAM, QD
     Route: 058
     Dates: start: 20191025, end: 20191031
  6. GONADOTROPIN, CHORIONIC [Concomitant]
     Active Substance: CHORIOGONADOTROPIN ALFA
     Indication: INFERTILITY MALE
     Dosage: 10000 UNITS, QD
     Route: 030
     Dates: start: 20191031
  7. FOLLISTIM AQ [Suspect]
     Active Substance: FOLLITROPIN
     Indication: INFERTILITY MALE
     Dosage: 300 INTERNATIONAL UNIT, QD
     Route: 058
     Dates: start: 20191020, end: 20191031
  8. DESOGESTREL (+) ETHINYL ESTRADIOL [Concomitant]
     Active Substance: DESOGESTREL\ETHINYL ESTRADIOL
  9. PUREGON PEN [DEVICE] [Suspect]
     Active Substance: DEVICE
  10. FOLLISTIM AQ [Suspect]
     Active Substance: FOLLITROPIN
     Indication: INFERTILITY FEMALE
     Dosage: 900 IU/1.08 ML, AS DIRECTED
     Route: 058
     Dates: start: 20191017
  11. PUREGON PEN [DEVICE] [Suspect]
     Active Substance: DEVICE

REACTIONS (3)
  - Device malfunction [Unknown]
  - Headache [Unknown]
  - Device defective [Unknown]

NARRATIVE: CASE EVENT DATE: 201910
